FAERS Safety Report 9900045 (Version 1)
Quarter: 2014Q1

REPORT INFORMATION
  Report Type: Spontaneous
  Country: US (occurrence: US)
  Receive Date: 20140214
  Receipt Date: 20140214
  Transmission Date: 20141002
  Serious: No
  Sender: FDA-Public Use
  Company Number: US-VIVUS-2014V1000034

PATIENT
  Age: 61 Year
  Sex: Male
  Weight: 89.44 kg

DRUGS (8)
  1. QSYMIA 11.25MG/69MG [Suspect]
     Indication: PRODUCT USED FOR UNKNOWN INDICATION
     Route: 048
     Dates: start: 2013, end: 20131226
  2. QSYMIA 7.5MG/46MG [Suspect]
     Indication: PRODUCT USED FOR UNKNOWN INDICATION
     Route: 048
     Dates: start: 20131227
  3. QSYMIA 7.5MG/46MG [Suspect]
     Route: 048
     Dates: start: 2013, end: 2013
  4. QSYMIA 3.75MG/23MG [Suspect]
     Indication: PRODUCT USED FOR UNKNOWN INDICATION
     Route: 048
     Dates: start: 201307, end: 2013
  5. NIASPAN [Concomitant]
     Indication: BLOOD CHOLESTEROL INCREASED
     Route: 048
     Dates: start: 2013
  6. TEKTURNA [Concomitant]
     Indication: HYPERTENSION
     Route: 048
     Dates: start: 2009
  7. FISH OIL [Concomitant]
     Indication: SUPPLEMENTATION THERAPY
     Route: 048
     Dates: start: 1998
  8. MULTIVITAMIN [Concomitant]
     Indication: VITAMIN SUPPLEMENTATION
     Route: 048
     Dates: start: 1998

REACTIONS (1)
  - Blood creatinine increased [Unknown]
